FAERS Safety Report 12375638 (Version 5)
Quarter: 2016Q3

REPORT INFORMATION
  Report Type: Report from Study
  Country: FR (occurrence: FR)
  Receive Date: 20160517
  Receipt Date: 20160704
  Transmission Date: 20161109
  Serious: Yes (Hospitalization)
  Sender: FDA-Public Use
  Company Number: FR-JNJFOC-20160510112

PATIENT
  Age: 17 Year
  Sex: Female
  Weight: 59.6 kg

DRUGS (3)
  1. SIMPONI [Suspect]
     Active Substance: GOLIMUMAB
     Indication: CROHN^S DISEASE
     Route: 058
     Dates: start: 20151115, end: 20160107
  2. REMICADE [Suspect]
     Active Substance: INFLIXIMAB
     Indication: CROHN^S DISEASE
     Route: 042
     Dates: start: 201004
  3. REMICADE [Suspect]
     Active Substance: INFLIXIMAB
     Indication: CROHN^S DISEASE
     Route: 042
     Dates: start: 20151026, end: 20151109

REACTIONS (1)
  - Perineal abscess [Recovered/Resolved]

NARRATIVE: CASE EVENT DATE: 20160115
